FAERS Safety Report 9026606 (Version 2)
Quarter: 2013Q1

REPORT INFORMATION
  Report Type: Spontaneous
  Country: DE (occurrence: None)
  Receive Date: 20130103
  Receipt Date: 20130114
  Transmission Date: 20140127
  Serious: Yes (Death)
  Sender: FDA-Public Use
  Company Number: 2013034341

PATIENT
  Age: 76 Year
  Sex: Male

DRUGS (11)
  1. PRIVIGEN (IMMUNE GLOBULIN INTRAVENOUS (HUMAN) 10% LIQUID) [Suspect]
     Indication: PLASMACYTOMA
     Route: 042
     Dates: start: 20120823, end: 20120823
  2. BONDRONAT /01304701/ (IBANDRONIC ACID) [Concomitant]
  3. GLUCOCORTICOIDS (GLUCOCORTICOIDS) [Concomitant]
  4. ANTIBIOTICS (ANTIBIOTICS) [Concomitant]
  5. OTHER ANTIMYCOTICS FOR SYSTEMIC USE (OTHER ANTIMYCOTICS FOR SYSTEMIC USE) [Concomitant]
  6. GRANISETRON (GRANISETRON) [Concomitant]
  7. TAVANIC (LEVOFLOXACIN) [Concomitant]
  8. VELCADE (BORTEZOMIB) [Concomitant]
  9. MCP [Concomitant]
  10. BENDAMUSTINE [Suspect]
  11. DEXAMETHASONE [Suspect]

REACTIONS (1)
  - Death [None]
